FAERS Safety Report 11317313 (Version 1)
Quarter: 2015Q3

REPORT INFORMATION
  Report Type: Spontaneous
  Country: US (occurrence: None)
  Receive Date: 20150727
  Receipt Date: 20150727
  Transmission Date: 20151125
  Serious: No
  Sender: FDA-Public Use
  Company Number: None

PATIENT
  Age: 37 Year
  Sex: Female

DRUGS (1)
  1. INSULIN LISPRO [Suspect]
     Active Substance: INSULIN LISPRO
     Indication: HYPERGLYCAEMIA
     Dosage: CONTINUOUS SC
     Route: 058
     Dates: end: 20150609

REACTIONS (4)
  - Blood glucose increased [None]
  - Seizure [None]
  - Refusal of treatment by patient [None]
  - Blood glucose decreased [None]

NARRATIVE: CASE EVENT DATE: 20150609
